FAERS Safety Report 20758898 (Version 1)
Quarter: 2022Q2

REPORT INFORMATION
  Report Type: Report from Study
  Country: CA (occurrence: CA)
  Receive Date: 20220427
  Receipt Date: 20220427
  Transmission Date: 20220721
  Serious: Yes (Other)
  Sender: FDA-Public Use
  Company Number: CA-AZURITY PHARMACEUTICALS, INC.-CA-2022ARB001096

PATIENT

DRUGS (3)
  1. METHOTREXATE [Suspect]
     Active Substance: METHOTREXATE
     Indication: Osteosarcoma
     Dosage: HIGH-DOSE
  2. CISPLATIN [Concomitant]
     Active Substance: CISPLATIN
     Indication: Osteosarcoma
     Dosage: UNK
  3. DOXORUBICIN [Concomitant]
     Active Substance: DOXORUBICIN
     Indication: Osteosarcoma
     Dosage: UNK

REACTIONS (4)
  - Hypercalcaemic nephropathy [Unknown]
  - Pathological fracture [Unknown]
  - Renal impairment [Unknown]
  - Condition aggravated [Unknown]
